FAERS Safety Report 20921455 (Version 5)
Quarter: 2022Q3

REPORT INFORMATION
  Report Type: Report from Study
  Country: CN (occurrence: CN)
  Receive Date: 20220606
  Receipt Date: 20220712
  Transmission Date: 20221027
  Serious: Yes (Life-Threatening, Hospitalization)
  Sender: FDA-Public Use
  Company Number: CN-ABBVIE-22P-035-4416596-00

PATIENT
  Age: 65 Year
  Sex: Male
  Weight: 60 kg

DRUGS (15)
  1. VENETOCLAX [Suspect]
     Active Substance: VENETOCLAX
     Indication: Acute myeloid leukaemia
     Route: 048
     Dates: start: 20220404, end: 20220530
  2. VENETOCLAX [Suspect]
     Active Substance: VENETOCLAX
     Route: 048
     Dates: start: 20220624
  3. AZACITIDINE [Suspect]
     Active Substance: AZACITIDINE
     Indication: Acute myeloid leukaemia
     Dosage: DAYS 1-7 OF EACH CYCLE, LAST DOSE OF CYCLE 2 PRIOR TO SAE 18-MAY-2022
     Route: 058
     Dates: start: 20220404
  4. AMINOMETHYLBENZOIC ACID [Concomitant]
     Active Substance: AMINOMETHYLBENZOIC ACID
     Indication: Haemorrhage prophylaxis
     Route: 041
     Dates: start: 20220325, end: 20220429
  5. AMINOMETHYLBENZOIC ACID [Concomitant]
     Active Substance: AMINOMETHYLBENZOIC ACID
     Route: 041
     Dates: start: 20220509, end: 20220523
  6. AMINOMETHYLBENZOIC ACID [Concomitant]
     Active Substance: AMINOMETHYLBENZOIC ACID
     Route: 041
     Dates: start: 20220529
  7. ETHAMSYLATE [Concomitant]
     Active Substance: ETHAMSYLATE
     Indication: Haemorrhage prophylaxis
     Route: 041
     Dates: start: 20220325, end: 20220429
  8. ETHAMSYLATE [Concomitant]
     Active Substance: ETHAMSYLATE
     Route: 042
     Dates: start: 20220509, end: 20220523
  9. HYDROTALCITE [Concomitant]
     Active Substance: HYDROTALCITE
     Indication: Antacid therapy
     Route: 048
     Dates: start: 20220401
  10. HUMAN GRANULOCYTE STIMULATING FACTOR [Concomitant]
     Indication: Granulocyte count decreased
     Route: 041
     Dates: start: 20220509, end: 20220523
  11. HUMAN GRANULOCYTE STIMULATING FACTOR [Concomitant]
     Route: 041
     Dates: start: 20220529, end: 20220613
  12. ONDANSETRON HYDROCHLORIDE [Concomitant]
     Active Substance: ONDANSETRON HYDROCHLORIDE
     Indication: Prophylaxis of nausea and vomiting
     Route: 042
     Dates: start: 20220404, end: 20220414
  13. ONDANSETRON HYDROCHLORIDE [Concomitant]
     Active Substance: ONDANSETRON HYDROCHLORIDE
     Route: 042
     Dates: start: 20220512, end: 20220523
  14. VITAMIN K1 [Concomitant]
     Active Substance: PHYTONADIONE
     Indication: Haemorrhage prophylaxis
     Route: 041
     Dates: start: 20220325, end: 20220429
  15. VITAMIN K1 [Concomitant]
     Active Substance: PHYTONADIONE
     Route: 041
     Dates: start: 20220509, end: 20220523

REACTIONS (2)
  - Myelosuppression [Recovered/Resolved]
  - Pneumonia [Not Recovered/Not Resolved]

NARRATIVE: CASE EVENT DATE: 20220526
